FAERS Safety Report 9860814 (Version 2)
Quarter: 2014Q1

REPORT INFORMATION
  Report Type: Spontaneous
  Country: US (occurrence: US)
  Receive Date: 20140202
  Receipt Date: 20140202
  Transmission Date: 20141002
  Serious: No
  Sender: FDA-Public Use
  Company Number: US-ALLERGAN-1301305US

PATIENT
  Sex: Female

DRUGS (3)
  1. BOTOX [Suspect]
     Indication: HEADACHE
     Dosage: 20 UNITS, SINGLE
     Route: 030
     Dates: start: 20121220, end: 20121220
  2. BOTOX [Suspect]
     Indication: BRUXISM
  3. BOTOX [Suspect]
     Indication: BRUXISM

REACTIONS (3)
  - Wrong technique in drug usage process [Unknown]
  - Off label use [Unknown]
  - Drug ineffective [Unknown]
